FAERS Safety Report 4713738-3 (Version None)
Quarter: 2005Q3

REPORT INFORMATION
  Report Type: 
  Country: None (occurrence: None)
  Receive Date: 20050713
  Receipt Date: 20050624
  Transmission Date: 20060218
  Serious: Yes (Other)
  Sender: FDA-Public Use
  Company Number: USA050699761

PATIENT
  Age: 54 Year
  Sex: Male

DRUGS (8)
  1. CIALIS [Suspect]
     Indication: ERECTILE DYSFUNCTION
     Dosage: 10 MG
     Dates: start: 20040101, end: 20050101
  2. LISINOPRIL [Concomitant]
  3. RELAFEN [Concomitant]
  4. ZYRTEC [Concomitant]
  5. INTERFERON [Concomitant]
  6. RIBAVIRIN [Concomitant]
  7. REMERON [Concomitant]
  8. AMIODARONE [Concomitant]

REACTIONS (4)
  - BLINDNESS [None]
  - HEPATITIS C [None]
  - OPTIC ISCHAEMIC NEUROPATHY [None]
  - OPTIC NEURITIS [None]
